FAERS Safety Report 5094838-8 (Version None)
Quarter: 2006Q3

REPORT INFORMATION
  Report Type: 
  Country: None (occurrence: None)
  Receive Date: 20060830
  Receipt Date: 20060830
  Transmission Date: 20061208
  Serious: Yes (Life-Threatening, Hospitalization)
  Sender: FDA-Public Use
  Company Number: None

PATIENT
  Sex: Female

DRUGS (2)
  1. LOTREL [Suspect]
     Indication: HYPERTENSION
     Dosage: 5/20 TWO TIMES DAILY PO
     Route: 048
  2. CLONIDINE [Concomitant]

REACTIONS (4)
  - CIRCUMORAL OEDEMA [None]
  - DYSPHAGIA [None]
  - SPEECH DISORDER [None]
  - SWOLLEN TONGUE [None]
